FAERS Safety Report 23938881 (Version 1)
Quarter: 2024Q2

REPORT INFORMATION
  Report Type: Report from Study
  Country: US (occurrence: US)
  Receive Date: 20240604
  Receipt Date: 20240604
  Transmission Date: 20240716
  Serious: Yes (Other)
  Sender: FDA-Public Use
  Company Number: US-BAUSCHBL-2024BNL002178

PATIENT
  Age: 86 Year
  Sex: Male

DRUGS (1)
  1. XIIDRA [Suspect]
     Active Substance: LIFITEGRAST
     Indication: Product used for unknown indication
     Route: 047

REACTIONS (2)
  - Limb operation [Unknown]
  - Product use issue [Unknown]

NARRATIVE: CASE EVENT DATE: 20240520
